FAERS Safety Report 17836331 (Version 1)
Quarter: 2020Q2

REPORT INFORMATION
  Report Type: Spontaneous
  Country: DE (occurrence: DE)
  Receive Date: 20200528
  Receipt Date: 20200528
  Transmission Date: 20200714
  Serious: Yes (Congenital Anomaly, Other)
  Sender: FDA-Public Use
  Company Number: NVSC2020DE065429

PATIENT

DRUGS (1)
  1. OLMESARTAN MEDOXOMIL. [Suspect]
     Active Substance: OLMESARTAN MEDOXOMIL
     Indication: FOETAL EXPOSURE DURING PREGNANCY
     Dosage: MATERNAL DOSE: UNK
     Route: 064

REACTIONS (6)
  - Renal impairment neonatal [Unknown]
  - Foetal disorder [Recovering/Resolving]
  - Cranial sutures widening [Unknown]
  - Foetal exposure during pregnancy [Unknown]
  - Lenticulostriatal vasculopathy [Unknown]
  - Oligohydramnios [Unknown]
